FAERS Safety Report 5013626-1 (Version None)
Quarter: 2006Q2

REPORT INFORMATION
  Report Type: 
  Country: None (occurrence: None)
  Receive Date: 20060530
  Receipt Date: 20060412
  Transmission Date: 20061013
  Serious: Yes (Other)
  Sender: FDA-Public Use
  Company Number: JP-JPN-A200601211

PATIENT
  Age: 0 Day
  Sex: Male

DRUGS (6)
  1. PAXIL [Suspect]
     Indication: BIPOLAR DISORDER
     Dosage: 10MG PER DAY
     Dates: start: 20041202, end: 20041219
  2. HIRNAMIN [Suspect]
     Dosage: 25MG PER DAY
     Dates: start: 20041202, end: 20041219
  3. SILECE [Suspect]
     Dosage: 8MG PER DAY
     Dates: start: 20041202, end: 20041219
  4. DOGMATYL [Suspect]
     Dosage: 50MG THREE TIMES PER DAY
     Dates: start: 20041210, end: 20041219
  5. LIMAS [Suspect]
     Dosage: 200MG THREE TIMES PER DAY
     Dates: start: 20041202, end: 20041219
  6. TOLEDOMIN [Concomitant]
     Dates: start: 20041202, end: 20041219

REACTIONS (6)
  - APNOEA [None]
  - AREFLEXIA [None]
  - DRUG EXPOSURE DURING PREGNANCY [None]
  - NEONATAL ASPHYXIA [None]
  - RESPIRATORY DISORDER NEONATAL [None]
  - SOMNOLENCE NEONATAL [None]
